FAERS Safety Report 8990537 (Version 1)
Quarter: 2012Q4

REPORT INFORMATION
  Report Type: 
  Country: AR (occurrence: AR)
  Receive Date: 20121228
  Receipt Date: 20121228
  Transmission Date: 20130627
  Serious: Yes (Other)
  Sender: FDA-Public Use
  Company Number: AR-BRISTOL-MYERS SQUIBB COMPANY-16856866

PATIENT
  Age: 63 Year
  Sex: Female

DRUGS (1)
  1. YERVOY [Suspect]
     Indication: MALIGNANT MELANOMA
     Dates: start: 20120718

REACTIONS (8)
  - Phlebitis [Unknown]
  - Fatigue [Recovering/Resolving]
  - Influenza like illness [Recovering/Resolving]
  - Skin discolouration [Unknown]
  - Thyroid disorder [Unknown]
  - Myalgia [Unknown]
  - Weight decreased [Unknown]
  - Eating disorder [Unknown]
